FAERS Safety Report 7261820-1 (Version None)
Quarter: 2011Q1

REPORT INFORMATION
  Report Type: 
  Country: None (occurrence: None)
  Receive Date: 20110130
  Receipt Date: 20101210
  Transmission Date: 20110831
  Serious: No
  Sender: FDA-Public Use
  Company Number: US-ABBOTT-10P-163-0690907-00

PATIENT
  Age: 51 Year
  Sex: Female

DRUGS (1)
  1. HUMIRA [Suspect]
     Indication: CROHN'S DISEASE
     Dates: start: 20100901, end: 20101125

REACTIONS (4)
  - DRUG DOSE OMISSION [None]
  - SINUS CONGESTION [None]
  - SINUSITIS [None]
  - INCORRECT DOSE ADMINISTERED [None]
